FAERS Safety Report 8419500-2 (Version None)
Quarter: 2012Q2

REPORT INFORMATION
  Report Type: 
  Country: None (occurrence: None)
  Receive Date: 20120607
  Receipt Date: 20110722
  Transmission Date: 20120825
  Serious: Yes (Hospitalization)
  Sender: FDA-Public Use
  Company Number: US-BRISTOL-MYERS SQUIBB COMPANY-15919517

PATIENT
  Age: 70 Year
  Sex: Female

DRUGS (1)
  1. SUSTIVA [Suspect]

REACTIONS (1)
  - HOSPITALISATION [None]
